FAERS Safety Report 20533354 (Version 1)
Quarter: 2022Q1

REPORT INFORMATION
  Report Type: Spontaneous
  Country: FR (occurrence: FR)
  Receive Date: 20220301
  Receipt Date: 20220301
  Transmission Date: 20220423
  Serious: Yes (Hospitalization)
  Sender: FDA-Public Use
  Company Number: None

PATIENT
  Age: 89 Year
  Sex: Female
  Weight: 42 kg

DRUGS (4)
  1. TRAMADOL [Suspect]
     Active Substance: TRAMADOL
     Indication: Polyarthritis
     Dosage: 20 GTT DROPS, QD
     Route: 048
  2. FENTANYL [Suspect]
     Active Substance: FENTANYL
     Indication: Polyarthritis
     Dosage: UNK
     Route: 062
     Dates: end: 20210418
  3. ACEBUTOLOL [Suspect]
     Active Substance: ACEBUTOLOL
     Indication: Hypertension
     Dosage: 0.5 DOSAGE FORM, QD
     Route: 048
  4. LAMICTAL [Concomitant]
     Active Substance: LAMOTRIGINE
     Indication: Seizure
     Dosage: 2 DOSAGE FORM, QD
     Route: 048

REACTIONS (2)
  - Fall [Recovering/Resolving]
  - Subdural haematoma [Not Recovered/Not Resolved]

NARRATIVE: CASE EVENT DATE: 20210418
